FAERS Safety Report 14555063 (Version 2)
Quarter: 2018Q1

REPORT INFORMATION
  Report Type: Spontaneous
  Country: US (occurrence: US)
  Receive Date: 20180220
  Receipt Date: 20180312
  Transmission Date: 20180509
  Serious: Yes (Hospitalization, Other)
  Sender: FDA-Public Use
  Company Number: US-GLAXOSMITHKLINE-US2018GSK027330

PATIENT
  Age: 57 Year
  Sex: Male

DRUGS (5)
  1. GABAPENTIN. [Suspect]
     Active Substance: GABAPENTIN
  2. ADVAIR HFA [Suspect]
     Active Substance: FLUTICASONE PROPIONATE\SALMETEROL XINAFOATE
     Indication: CHRONIC OBSTRUCTIVE PULMONARY DISEASE
     Route: 055
  3. SPIRIVA [Concomitant]
     Active Substance: TIOTROPIUM BROMIDE MONOHYDRATE
  4. ADVAIR DISKUS [Suspect]
     Active Substance: FLUTICASONE PROPIONATE\SALMETEROL XINAFOATE
     Indication: CHRONIC OBSTRUCTIVE PULMONARY DISEASE
     Dosage: 1 PUFF(S), BID
     Route: 055
  5. VENTOLIN [Concomitant]
     Active Substance: ALBUTEROL SULFATE

REACTIONS (15)
  - Hypoxia [Recovering/Resolving]
  - Intervertebral disc disorder [Unknown]
  - Acute respiratory failure [Recovering/Resolving]
  - Wrong strength [Unknown]
  - Pneumonia [Unknown]
  - Hypercapnia [Recovering/Resolving]
  - Somnolence [Unknown]
  - Spinal fracture [Unknown]
  - Chronic obstructive pulmonary disease [Recovering/Resolving]
  - Musculoskeletal stiffness [Unknown]
  - Back pain [Unknown]
  - Dyspnoea [Recovering/Resolving]
  - Back injury [Unknown]
  - Fall [Unknown]
  - Dizziness [Unknown]

NARRATIVE: CASE EVENT DATE: 20180207
